FAERS Safety Report 23128440 (Version 9)
Quarter: 2025Q1

REPORT INFORMATION
  Report Type: Spontaneous
  Country: US (occurrence: US)
  Receive Date: 20231031
  Receipt Date: 20250128
  Transmission Date: 20250409
  Serious: Yes (Disabling, Other)
  Sender: AMGEN
  Company Number: US-HORIZON THERAPEUTICS-HZN-2023-008278

PATIENT
  Age: 68 Year
  Sex: Female

DRUGS (30)
  1. TEPEZZA [Suspect]
     Active Substance: TEPROTUMUMAB-TRBW
     Indication: Endocrine ophthalmopathy
     Route: 042
     Dates: start: 20201014
  2. TEPEZZA [Suspect]
     Active Substance: TEPROTUMUMAB-TRBW
     Indication: Graves^ disease
     Route: 042
     Dates: start: 20201104
  3. TEPEZZA [Suspect]
     Active Substance: TEPROTUMUMAB-TRBW
     Route: 042
     Dates: start: 20201125
  4. TEPEZZA [Suspect]
     Active Substance: TEPROTUMUMAB-TRBW
     Route: 042
     Dates: start: 20210701
  5. TEPEZZA [Suspect]
     Active Substance: TEPROTUMUMAB-TRBW
     Route: 042
     Dates: start: 20210722
  6. TEPEZZA [Suspect]
     Active Substance: TEPROTUMUMAB-TRBW
     Route: 042
     Dates: start: 20210812
  7. TEPEZZA [Suspect]
     Active Substance: TEPROTUMUMAB-TRBW
     Route: 042
     Dates: start: 20210902
  8. TEPEZZA [Suspect]
     Active Substance: TEPROTUMUMAB-TRBW
     Route: 042
     Dates: start: 20210923
  9. NORVASC [Concomitant]
     Active Substance: AMLODIPINE BESYLATE
     Dosage: UNK UNK, QD
     Route: 048
     Dates: start: 20170128
  10. VITAMIN D3 [Concomitant]
     Active Substance: CHOLECALCIFEROL
     Dosage: 25 MICROGRAM, QD (TWO CAPSULES)
     Route: 048
  11. TYLENOL [Concomitant]
     Active Substance: ACETAMINOPHEN
     Dosage: UNK UNK, Q6H
     Route: 065
     Dates: start: 20190512
  12. ATROPINE [Concomitant]
     Active Substance: ATROPINE
     Dosage: UNK, Q4H PLACE 1 DROP UNDER THE TONGUE
     Route: 065
     Dates: start: 20190514
  13. ONABOTULINUMTOXINA [Concomitant]
     Active Substance: ONABOTULINUMTOXINA
     Route: 065
  14. IBUPROFEN [Concomitant]
     Active Substance: IBUPROFEN
     Indication: Pain
     Dosage: 600 MILLIGRAM, Q8H
     Route: 048
  15. FLONASE [Concomitant]
     Active Substance: FLUTICASONE PROPIONATE
     Dosage: 50 MICROGRAM, BID
     Route: 065
     Dates: start: 20220215, end: 20220607
  16. DOTAREM [Concomitant]
     Active Substance: GADOTERATE MEGLUMINE
     Route: 065
  17. EPHEDRINE [Concomitant]
     Active Substance: EPHEDRINE
     Route: 065
  18. GADOTERATE MEGLUMINE [Concomitant]
     Active Substance: GADOTERATE MEGLUMINE
     Route: 065
  19. GABAPENTIN [Concomitant]
     Active Substance: GABAPENTIN
     Route: 065
  20. ROCURONIUM [Concomitant]
     Active Substance: ROCURONIUM BROMIDE
     Route: 065
  21. SODIUM CHLORIDE [Concomitant]
     Active Substance: SODIUM CHLORIDE
     Route: 065
  22. SUGAMMADEX [Concomitant]
     Active Substance: SUGAMMADEX
     Route: 065
  23. CEFAZOLIN [Concomitant]
     Active Substance: CEFAZOLIN
     Route: 065
  24. DEXAMETHASONE [Concomitant]
     Active Substance: DEXAMETHASONE
     Route: 065
  25. GLYCOPYRROLATE [Concomitant]
     Active Substance: GLYCOPYRROLATE
     Route: 065
  26. MIDAZOLAM [Concomitant]
     Active Substance: MIDAZOLAM
     Route: 065
  27. PHENYLEPHRINE [Concomitant]
     Active Substance: PHENYLEPHRINE
     Route: 065
  28. ONDANSETRON [Concomitant]
     Active Substance: ONDANSETRON
     Route: 065
  29. PROPOFOL [Concomitant]
     Active Substance: PROPOFOL
     Route: 065
  30. LACTATED RINGERS SOLUTION [Concomitant]
     Active Substance: CALCIUM CHLORIDE\POTASSIUM CHLORIDE\SODIUM CHLORIDE\SODIUM LACTATE
     Route: 065

REACTIONS (27)
  - Disability [Unknown]
  - Physical disability [Unknown]
  - Deafness [Unknown]
  - Mental disorder [Unknown]
  - Injury [Unknown]
  - Pain [Unknown]
  - Condition aggravated [Unknown]
  - Dyspnoea [Unknown]
  - Emotional distress [Unknown]
  - Discomfort [Unknown]
  - Anxiety [Unknown]
  - Impaired quality of life [Unknown]
  - Economic problem [Unknown]
  - Product quality issue [Unknown]
  - Food intolerance [Unknown]
  - Abdominal discomfort [Unknown]
  - Balance disorder [Not Recovered/Not Resolved]
  - Nystagmus [Unknown]
  - Strabismus [Unknown]
  - Eye pain [Unknown]
  - Conjunctival hyperaemia [Unknown]
  - Ear pain [Recovered/Resolved]
  - Ear discomfort [Recovered/Resolved]
  - Weight decreased [Unknown]
  - Eustachian tube dysfunction [Unknown]
  - Tinnitus [Unknown]
  - Autophony [Unknown]

NARRATIVE: CASE EVENT DATE: 20200101
